FAERS Safety Report 5553808-3 (Version None)
Quarter: 2007Q4

REPORT INFORMATION
  Report Type: 
  Country: None (occurrence: None)
  Receive Date: 20071213
  Receipt Date: 20071205
  Transmission Date: 20080405
  Serious: Yes (Hospitalization)
  Sender: FDA-Public Use
  Company Number: DE-ELI_LILLY_AND_COMPANY-DE200711000459

PATIENT
  Sex: Male

DRUGS (11)
  1. BYETTA [Suspect]
     Dates: start: 20070101
  2. CANDESARTAN CILEXETIL [Concomitant]
     Dosage: UNK, EACH MORNING
  3. CANDESARTAN CILEXETIL [Concomitant]
     Dosage: UNK, EACH EVENING
  4. LISINOPRIL [Concomitant]
     Dosage: UNK, EACH MORNING
  5. TORSEMIDE [Concomitant]
     Dosage: UNK, EACH MORNING
  6. METFORMIN HCL [Concomitant]
     Dosage: UNK, EACH MORNING
  7. METFORMIN HCL [Concomitant]
     Dosage: UNK, EACH EVENING
  8. NEXIUM [Concomitant]
     Dosage: UNK, EACH MORNING
  9. NEXIUM [Concomitant]
     Dosage: UNK, EACH EVENING
  10. TREVILOR [Concomitant]
     Dosage: UNK, EACH MORNING
  11. PANZYTRAT [Concomitant]
     Dosage: UNK, 3/D

REACTIONS (9)
  - ASCITES [None]
  - GASTROINTESTINAL INFLAMMATION [None]
  - HEPATIC STEATOSIS [None]
  - JOINT SWELLING [None]
  - METASTASES TO PERITONEUM [None]
  - METASTASES TO PLEURA [None]
  - PLEURAL EFFUSION [None]
  - POLYSEROSITIS [None]
  - SPINAL OSTEOARTHRITIS [None]
